FAERS Safety Report 4710981-4 (Version None)
Quarter: 2005Q2

REPORT INFORMATION
  Report Type: 
  Country: None (occurrence: None)
  Receive Date: 20050629
  Receipt Date: 20050412
  Transmission Date: 20051028
  Serious: No
  Sender: FDA-Public Use
  Company Number: 04P-163-0284178-00

PATIENT
  Age: 74 Year
  Sex: Female
  Weight: 72.5755 kg

DRUGS (4)
  1. HUMIRA [Suspect]
     Indication: RHEUMATOID ARTHRITIS
     Dosage: 40 MG, 1 IN 2 WK, SUBCUTANEOUS
     Route: 058
     Dates: start: 20030101, end: 20050409
  2. LANSOPRAZOLE [Concomitant]
  3. NARINE REPETABS [Concomitant]
  4. AMLODIPINE BESYLATE [Concomitant]

REACTIONS (2)
  - COUGH [None]
  - RESPIRATORY TRACT CONGESTION [None]
